FAERS Safety Report 8992236 (Version 2)
Quarter: 2013Q1

REPORT INFORMATION
  Report Type: Spontaneous
  Country: ES (occurrence: ES)
  Receive Date: 20121231
  Receipt Date: 20130125
  Transmission Date: 20140127
  Serious: Yes (Life-Threatening, Hospitalization)
  Sender: FDA-Public Use
  Company Number: ES-ELI_LILLY_AND_COMPANY-ES201212006562

PATIENT
  Sex: Female
  Weight: 60 kg

DRUGS (3)
  1. FORSTEO [Suspect]
     Indication: OSTEOPOROSIS
     Dosage: 20 UG, QD
     Route: 058
     Dates: start: 20120525, end: 201210
  2. MORPHINE [Concomitant]
     Indication: PAIN
     Dosage: UNK, 2/W
     Route: 062
     Dates: end: 201210
  3. SINTROM [Concomitant]
     Indication: THROMBOSIS

REACTIONS (4)
  - Lung infection [Recovering/Resolving]
  - Pyrexia [Recovered/Resolved]
  - Vomiting [Recovered/Resolved]
  - Laboratory test abnormal [Recovered/Resolved]
